FAERS Safety Report 11147847 (Version 1)
Quarter: 2015Q2

REPORT INFORMATION
  Report Type: Spontaneous
  Country: US (occurrence: US)
  Receive Date: 20150529
  Receipt Date: 20150529
  Transmission Date: 20150821
  Serious: Yes (Other)
  Sender: FDA-Public Use
  Company Number: US-SUN PHARMACEUTICAL INDUSTRIES LTD-2015SUN01243

PATIENT
  Age: 64 Year
  Sex: Male

DRUGS (4)
  1. GEMCITABINE [Suspect]
     Active Substance: GEMCITABINE\GEMCITABINE HYDROCHLORIDE
     Indication: METASTASES TO LIVER
     Dosage: 750 MG/M2 AT FIXED DOSE (ON DAYS 1,8 AND 15)
     Route: 065
  2. GEMCITABINE [Suspect]
     Active Substance: GEMCITABINE\GEMCITABINE HYDROCHLORIDE
     Indication: DUCTAL ADENOCARCINOMA OF PANCREAS
  3. NAB-PACLITAXEL [Suspect]
     Active Substance: PACLITAXEL
     Indication: METASTASES TO LIVER
     Dosage: 125 MG/M2, OVER 30 MINS
     Route: 042
  4. NAB-PACLITAXEL [Suspect]
     Active Substance: PACLITAXEL
     Indication: DUCTAL ADENOCARCINOMA OF PANCREAS
     Dosage: DOSE REDUCED BY 20%
     Route: 042

REACTIONS (4)
  - Neutropenia [Unknown]
  - Alopecia [Unknown]
  - Thrombocytopenia [Unknown]
  - Fatigue [Unknown]
